FAERS Safety Report 7755598-2 (Version None)
Quarter: 2011Q3

REPORT INFORMATION
  Report Type: 
  Country: None (occurrence: None)
  Receive Date: 20110915
  Receipt Date: 20110915
  Transmission Date: 20111222
  Serious: No
  Sender: FDA-Public Use
  Company Number: None

PATIENT
  Sex: Male

DRUGS (1)
  1. ENBREL [Suspect]
     Indication: SPONDYLITIS
     Dosage: 50 MG QWEEK SQ
     Route: 058
     Dates: start: 20110603, end: 20110914

REACTIONS (1)
  - EAR PAIN [None]
